FAERS Safety Report 9171722 (Version 2)
Quarter: 2013Q2

REPORT INFORMATION
  Report Type: Spontaneous
  Country: US (occurrence: None)
  Receive Date: 20130318
  Receipt Date: 20130628
  Transmission Date: 20140414
  Serious: Yes (Death)
  Sender: FDA-Public Use
  Company Number: AG-2013-0830

PATIENT
  Age: 5 Month
  Sex: 0

DRUGS (3)
  1. MELPHALAN [Suspect]
     Indication: BONE MARROW TRANSPLANT
  2. BUSULFAN [Suspect]
     Indication: BONE MARROW TRANSPLANT
  3. ANTITHYMOCYTE IMMUNOGLOBULIN (RABBIT [Suspect]
     Indication: BONE MARROW TRANSPLANT

REACTIONS (3)
  - Pulmonary haemorrhage [None]
  - Venoocclusive liver disease [None]
  - Off label use [None]
